FAERS Safety Report 15151368 (Version 1)
Quarter: 2018Q3

REPORT INFORMATION
  Report Type: Spontaneous
  Country: US (occurrence: US)
  Receive Date: 20180619
  Receipt Date: 20180619
  Transmission Date: 20181010
  Serious: Yes (Other)
  Sender: FDA-Public Use
  Company Number: None

PATIENT
  Sex: Male
  Weight: 53.55 kg

DRUGS (1)
  1. MONTELUKAST SOD 5 MG TAB CHEW [Suspect]
     Active Substance: MONTELUKAST SODIUM
     Indication: HYPERSENSITIVITY
     Dosage: ?          QUANTITY:1 TABLET(S);?
     Route: 048
     Dates: start: 20151001, end: 20171101

REACTIONS (8)
  - Obsessive-compulsive disorder [None]
  - Tic [None]
  - Anger [None]
  - Cognitive disorder [None]
  - Anxiety [None]
  - Aggression [None]
  - Insomnia [None]
  - Reading disorder [None]
